FAERS Safety Report 4738434-8 (Version None)
Quarter: 2005Q3

REPORT INFORMATION
  Report Type: 
  Country: None (occurrence: None)
  Receive Date: 20050728
  Receipt Date: 20050427
  Transmission Date: 20060218
  Serious: No
  Sender: FDA-Public Use
  Company Number: 200513351US

PATIENT
  Age: 54 Year
  Sex: Male

DRUGS (2)
  1. KETEK [Suspect]
     Indication: LOBAR PNEUMONIA
     Dosage: 800 MG QD
  2. KETEK [Suspect]
     Indication: SINUSITIS
     Dosage: 800 MG QD

REACTIONS (2)
  - ALANINE AMINOTRANSFERASE INCREASED [None]
  - HEPATIC ENZYME INCREASED [None]
